FAERS Safety Report 7353179-6 (Version None)
Quarter: 2011Q1

REPORT INFORMATION
  Report Type: 
  Country: None (occurrence: None)
  Receive Date: 20110315
  Receipt Date: 20110303
  Transmission Date: 20110831
  Serious: Yes (Hospitalization)
  Sender: FDA-Public Use
  Company Number: US-WATSON-2011-02646

PATIENT
  Age: 8 Year
  Sex: Male

DRUGS (2)
  1. AMLODIPINE BESYLATE [Suspect]
     Indication: HYPERTENSION
     Dosage: UNK
  2. NICARDIPINE HCL [Suspect]
     Indication: HYPERTENSION
     Dosage: UNK

REACTIONS (3)
  - SWELLING FACE [None]
  - ANGIOEDEMA [None]
  - MACROGLOSSIA [None]
